FAERS Safety Report 4739911-6 (Version None)
Quarter: 2005Q3

REPORT INFORMATION
  Report Type: 
  Country: None (occurrence: None)
  Receive Date: 20050810
  Receipt Date: 20030909
  Transmission Date: 20060218
  Serious: No
  Sender: FDA-Public Use
  Company Number: US-GLAXOSMITHKLINE-A0425780A

PATIENT
  Sex: Female

DRUGS (8)
  1. PAXIL [Suspect]
     Indication: DRUG USE FOR UNKNOWN INDICATION
     Dosage: 20MG PER DAY
     Route: 048
     Dates: start: 20000108
  2. PREMARIN [Concomitant]
     Indication: DRUG USE FOR UNKNOWN INDICATION
     Dosage: .625MG PER DAY
     Route: 048
  3. PRAVACHOL [Concomitant]
     Indication: DRUG USE FOR UNKNOWN INDICATION
     Dosage: 20MG PER DAY
     Route: 048
  4. ARTHROTEC [Concomitant]
     Indication: DRUG USE FOR UNKNOWN INDICATION
     Route: 048
  5. TRIMOX [Concomitant]
     Indication: DRUG USE FOR UNKNOWN INDICATION
     Route: 048
  6. CLARITIN [Concomitant]
     Indication: DRUG USE FOR UNKNOWN INDICATION
     Route: 048
  7. ZITHROMAX [Concomitant]
     Indication: DRUG USE FOR UNKNOWN INDICATION
     Route: 048
  8. GUAIFEN PSE [Concomitant]
     Indication: DRUG USE FOR UNKNOWN INDICATION
     Route: 048

REACTIONS (1)
  - DRUG WITHDRAWAL SYNDROME [None]
